FAERS Safety Report 21947071 (Version 3)
Quarter: 2023Q1

REPORT INFORMATION
  Report Type: Spontaneous
  Country: FR (occurrence: FR)
  Receive Date: 20230202
  Receipt Date: 20230316
  Transmission Date: 20230417
  Serious: Yes (Hospitalization)
  Sender: FDA-Public Use
  Company Number: None

PATIENT
  Age: 38 Year
  Sex: Female
  Weight: 56 kg

DRUGS (15)
  1. KEYTRUDA [Suspect]
     Active Substance: PEMBROLIZUMAB
     Indication: Triple negative breast cancer
     Dosage: 200 MILLIGRAM, QD
     Route: 042
     Dates: start: 20220607, end: 20220607
  2. KEYTRUDA [Suspect]
     Active Substance: PEMBROLIZUMAB
     Dosage: 200 MILLIGRAM, QD
     Route: 042
     Dates: start: 20220510, end: 20220510
  3. KEYTRUDA [Suspect]
     Active Substance: PEMBROLIZUMAB
     Dosage: 200 MILLIGRAM, QD
     Route: 042
     Dates: start: 20220705, end: 20220705
  4. CARBOPLATIN [Suspect]
     Active Substance: CARBOPLATIN
     Indication: Triple negative breast cancer
     Dosage: 284 MILLIGRAM, QD
     Route: 042
     Dates: start: 20220614, end: 20220614
  5. CARBOPLATIN [Suspect]
     Active Substance: CARBOPLATIN
     Dosage: 292 MILLIGRAM, QD
     Route: 042
     Dates: start: 20220517, end: 20220517
  6. CARBOPLATIN [Suspect]
     Active Substance: CARBOPLATIN
     Dosage: 284 MILLIGRAM, QD
     Route: 042
     Dates: start: 20220607, end: 20220607
  7. CARBOPLATIN [Suspect]
     Active Substance: CARBOPLATIN
     Dosage: 292 MILLIGRAM, QD
     Route: 042
     Dates: start: 20220510, end: 20220510
  8. CARBOPLATIN [Suspect]
     Active Substance: CARBOPLATIN
     Dosage: 298.5 MILLIGRAM, QD
     Route: 042
     Dates: start: 20220712, end: 20220712
  9. CARBOPLATIN [Suspect]
     Active Substance: CARBOPLATIN
     Dosage: 298.5 MILLIGRAM, QD
     Route: 042
     Dates: start: 20220705, end: 20220705
  10. GEMCITABINE [Suspect]
     Active Substance: GEMCITABINE
     Indication: Triple negative breast cancer
     Dosage: 1600 MILLIGRAM, QD
     Route: 042
     Dates: start: 20220607, end: 20220607
  11. GEMCITABINE [Suspect]
     Active Substance: GEMCITABINE
     Dosage: 1280 MILLIGRAM, QD
     Route: 042
     Dates: start: 20220712, end: 20220712
  12. GEMCITABINE [Suspect]
     Active Substance: GEMCITABINE
     Dosage: 1620 MILLIGRAM, QD
     Route: 042
     Dates: start: 20220517, end: 20220517
  13. GEMCITABINE [Suspect]
     Active Substance: GEMCITABINE
     Dosage: 1620 MILLIGRAM, QD
     Route: 042
     Dates: start: 20220510, end: 20220510
  14. GEMCITABINE [Suspect]
     Active Substance: GEMCITABINE
     Dosage: 1600 MILLIGRAM, QD
     Route: 042
     Dates: start: 20220614, end: 20220614
  15. GEMCITABINE [Suspect]
     Active Substance: GEMCITABINE
     Dosage: 1280 MILLIGRAM, QD
     Route: 042
     Dates: start: 20220705, end: 20220705

REACTIONS (1)
  - Pancytopenia [Recovered/Resolved]

NARRATIVE: CASE EVENT DATE: 20220627
